FAERS Safety Report 4984815-7 (Version None)
Quarter: 2006Q2

REPORT INFORMATION
  Report Type: 
  Country: None (occurrence: None)
  Receive Date: 20060427
  Receipt Date: 20060419
  Transmission Date: 20061013
  Serious: Yes (Other)
  Sender: FDA-Public Use
  Company Number: 2006AP01813

PATIENT
  Age: 56 Year
  Sex: Female

DRUGS (1)
  1. QUETIAPINE FUMARATE [Suspect]
     Route: 048

REACTIONS (1)
  - COLONIC PSEUDO-OBSTRUCTION [None]
